FAERS Safety Report 17963893 (Version 4)
Quarter: 2020Q3

REPORT INFORMATION
  Report Type: Spontaneous
  Country: RO (occurrence: RO)
  Receive Date: 20200630
  Receipt Date: 20200731
  Transmission Date: 20201103
  Serious: Yes (Other)
  Sender: FDA-Public Use
  Company Number: RO-PFIZER INC-2020249504

PATIENT
  Age: 32 Year
  Sex: Male

DRUGS (15)
  1. DICLOFENAC [Suspect]
     Active Substance: DICLOFENAC
     Indication: ANTIINFLAMMATORY THERAPY
     Dosage: UNK
     Route: 065
  2. METRONIDAZOLE. [Concomitant]
     Active Substance: METRONIDAZOLE
     Indication: INFLAMMATION
  3. IBUPROFEN. [Suspect]
     Active Substance: IBUPROFEN
     Indication: ANTIINFLAMMATORY THERAPY
     Dosage: UNK
     Route: 065
  4. DOXYCYCLINE. [Concomitant]
     Active Substance: DOXYCYCLINE
     Indication: INFLAMMATION
     Dosage: UNK FOR 2 WEEKS
  5. GABARAN [Suspect]
     Active Substance: GABAPENTIN
     Dosage: UNK, FOR TWO WEEKS
     Route: 065
  6. AFLAMIL [Suspect]
     Active Substance: ACECLOFENAC
     Indication: ANTIINFLAMMATORY THERAPY
     Dosage: UNK, FOR TWO WEEKS
     Route: 065
  7. MUVON [Suspect]
     Active Substance: PIROXICAM BETADEX
     Dosage: UNK, FOR TWO WEEKS
     Route: 065
  8. NUROFEN [IBUPROFEN] [Suspect]
     Active Substance: IBUPROFEN
     Indication: ANTIINFLAMMATORY THERAPY
     Dosage: UNK
     Route: 065
  9. METRONIDAZOLE. [Concomitant]
     Active Substance: METRONIDAZOLE
     Indication: ESCHERICHIA INFECTION
     Dosage: UNK
  10. AMOXICLAV [Concomitant]
     Active Substance: AMOXICILLIN\CLAVULANATE POTASSIUM
     Indication: ESCHERICHIA INFECTION
     Dosage: UNK
  11. NAPROXEN. [Suspect]
     Active Substance: NAPROXEN
     Indication: ANTIINFLAMMATORY THERAPY
     Dosage: UNK
     Route: 065
  12. CIPROFLOXACIN. [Suspect]
     Active Substance: CIPROFLOXACIN
     Indication: ESCHERICHIA INFECTION
     Dosage: FOR 4 WEEKS
     Route: 065
  13. TRAMADOL. [Suspect]
     Active Substance: TRAMADOL
     Dosage: UNK
     Route: 065
  14. METRONIDAZOLE. [Concomitant]
     Active Substance: METRONIDAZOLE
     Indication: INFLAMMATION
     Dosage: UNK
  15. AMITRIPTYLINE [Suspect]
     Active Substance: AMITRIPTYLINE
     Dosage: UNK
     Route: 065

REACTIONS (3)
  - Depression [Unknown]
  - Drug ineffective [Unknown]
  - Drug resistance [Unknown]
